FAERS Safety Report 6710014-4 (Version None)
Quarter: 2010Q2

REPORT INFORMATION
  Report Type: 
  Country: None (occurrence: None)
  Receive Date: 20100504
  Receipt Date: 20100422
  Transmission Date: 20101027
  Serious: Yes (Other)
  Sender: FDA-Public Use
  Company Number: US-PFIZER INC-2010051877

PATIENT
  Sex: Female

DRUGS (1)
  1. DETROL LA [Suspect]
     Indication: BLADDER DYSFUNCTION
     Dosage: 4 MG, DAILY
     Route: 048
     Dates: end: 20080101

REACTIONS (1)
  - BLADDER OBSTRUCTION [None]
